FAERS Safety Report 12237899 (Version 1)
Quarter: 2016Q2

REPORT INFORMATION
  Report Type: Spontaneous
  Country: GR (occurrence: GR)
  Receive Date: 20160405
  Receipt Date: 20160405
  Transmission Date: 20160815
  Serious: Yes (Hospitalization)
  Sender: FDA-Public Use
  Company Number: GR-VALIDUS PHARMACEUTICALS LLC-GR-2016VAL000718

PATIENT
  Sex: Male

DRUGS (6)
  1. ASPIRIN                            /00002701/ [Concomitant]
     Active Substance: ASPIRIN
     Indication: PRODUCT USED FOR UNKNOWN INDICATION
  2. SPIRONOLACTONE. [Suspect]
     Active Substance: SPIRONOLACTONE
     Indication: PRODUCT USED FOR UNKNOWN INDICATION
     Dosage: UNK
  3. DIGITALIS [Concomitant]
     Active Substance: DIGITALIS
     Indication: PRODUCT USED FOR UNKNOWN INDICATION
  4. FUROSEMIDE. [Suspect]
     Active Substance: FUROSEMIDE
     Indication: PRODUCT USED FOR UNKNOWN INDICATION
     Dosage: UNK
     Route: 048
  5. FUROSEMIDE. [Suspect]
     Active Substance: FUROSEMIDE
     Dosage: UNK
     Route: 042
  6. METOLAZONE. [Suspect]
     Active Substance: METOLAZONE
     Indication: PRODUCT USED FOR UNKNOWN INDICATION
     Dosage: UNK, SINGLE
     Route: 048

REACTIONS (14)
  - Oedema peripheral [Recovering/Resolving]
  - Troponin increased [Recovering/Resolving]
  - Dyspnoea [Recovering/Resolving]
  - Hypokalaemia [Recovering/Resolving]
  - Blood creatinine increased [Recovering/Resolving]
  - Fatigue [Recovering/Resolving]
  - Brain natriuretic peptide increased [Recovering/Resolving]
  - Hyponatraemia [Recovering/Resolving]
  - Asthenia [Recovering/Resolving]
  - Pulmonary congestion [Recovering/Resolving]
  - Alveolar oxygen partial pressure decreased [Recovering/Resolving]
  - Renal impairment [Recovering/Resolving]
  - Cardiac failure congestive [Recovering/Resolving]
  - Drug resistance [Recovering/Resolving]
